FAERS Safety Report 8207841-3 (Version None)
Quarter: 2012Q1

REPORT INFORMATION
  Report Type: 
  Country: None (occurrence: None)
  Receive Date: 20120314
  Receipt Date: 20120307
  Transmission Date: 20120608
  Serious: Yes (Other)
  Sender: FDA-Public Use
  Company Number: US-COVIDIEN/TYCO HEALTHCARE/MALLINCKRODT-T201201008

PATIENT
  Sex: Male
  Weight: 77.098 kg

DRUGS (6)
  1. REMERON [Concomitant]
     Indication: APPETITE DISORDER
     Route: 048
  2. BACLOFEN [Concomitant]
     Indication: MUSCLE RELAXANT THERAPY
     Route: 048
  3. METHADON HCL TAB [Suspect]
     Indication: PAIN IN EXTREMITY
  4. METHADON HCL TAB [Suspect]
     Indication: BACK PAIN
     Dosage: TOOK 1/3 OF A 10 MG TABLET
     Route: 048
     Dates: start: 20120301, end: 20120305
  5. METHADON HCL TAB [Suspect]
     Dosage: 10 MG QID
     Dates: start: 20120203
  6. METHADON HCL TAB [Suspect]
     Dosage: 2/3 OF 10 MG TABLET
     Dates: start: 20120301, end: 20120304

REACTIONS (5)
  - INTENTIONAL DRUG MISUSE [None]
  - HALLUCINATION, VISUAL [None]
  - MEMORY IMPAIRMENT [None]
  - ANXIETY [None]
  - NAUSEA [None]
